FAERS Safety Report 15778532 (Version 4)
Quarter: 2019Q1

REPORT INFORMATION
  Report Type: Report from Study
  Country: ES (occurrence: ES)
  Receive Date: 20181231
  Receipt Date: 20190301
  Transmission Date: 20190417
  Serious: Yes (Life-Threatening, Hospitalization)
  Sender: FDA-Public Use
  Company Number: ES-CELGENEUS-ESP-20181208366

PATIENT
  Age: 62 Year
  Sex: Male

DRUGS (3)
  1. AZACITIDINE INJECTABLE [Suspect]
     Active Substance: AZACITIDINE
     Indication: ACUTE MYELOID LEUKAEMIA
     Dosage: 142 MILLIGRAM
     Route: 058
     Dates: start: 20180601
  2. AZACITIDINE INJECTABLE [Suspect]
     Active Substance: AZACITIDINE
     Dosage: 142 MILLIGRAM
     Route: 058
     Dates: start: 20181213
  3. PREDNISONE. [Concomitant]
     Active Substance: PREDNISONE
     Indication: PRODUCT USED FOR UNKNOWN INDICATION
     Dosage: 10-20 MG
     Route: 048

REACTIONS (2)
  - Urosepsis [Recovered/Resolved]
  - Pseudomonas infection [Recovered/Resolved with Sequelae]

NARRATIVE: CASE EVENT DATE: 20181204
